FAERS Safety Report 10847174 (Version 3)
Quarter: 2015Q2

REPORT INFORMATION
  Report Type: Spontaneous
  Country: US (occurrence: US)
  Receive Date: 20150220
  Receipt Date: 20150410
  Transmission Date: 20150821
  Serious: Yes (Death, Hospitalization, Other)
  Sender: FDA-Public Use
  Company Number: US-INCYTE CORPORATION-2015IN000672

PATIENT
  Age: 82 Year
  Sex: Male
  Weight: 50.79 kg

DRUGS (14)
  1. JAKAFI [Suspect]
     Active Substance: RUXOLITINIB
     Dosage: 5 MG (2 TABS) BID
     Dates: start: 20141020
  2. CALCIUM [Concomitant]
     Active Substance: CALCIUM
     Dosage: 1 DF, BID
  3. NEPRO [Concomitant]
     Active Substance: DIETARY SUPPLEMENT
     Dosage: UNK
  4. NAMENDA [Concomitant]
     Active Substance: MEMANTINE HYDROCHLORIDE
     Dosage: 10 MG, BID
     Route: 048
  5. JAKAFI [Suspect]
     Active Substance: RUXOLITINIB
     Indication: MYELOFIBROSIS
     Dosage: 5 MG, BID
     Dates: start: 20140808
  6. TYLENOL [Concomitant]
     Active Substance: ACETAMINOPHEN
     Indication: PAIN
     Dosage: 325 MG, TWO TABS Q6H PRN
  7. JAKAFI [Suspect]
     Active Substance: RUXOLITINIB
     Dosage: 10 MG IN AM AND 5 MG IN THE PM
     Route: 048
     Dates: start: 20141215, end: 20150209
  8. VITAMIN D3 [Concomitant]
     Active Substance: CHOLECALCIFEROL
     Dosage: 1000 IU, QD
     Route: 048
  9. JAKAFI [Suspect]
     Active Substance: RUXOLITINIB
     Dosage: 10 MG IN AM AND 5 MG IN PM
     Dates: start: 201410
  10. FOLBIC [Concomitant]
     Active Substance: CYANOCOBALAMIN\FOLIC ACID\PYRIDOXINE
     Dosage: 1 DF, BID
  11. MULTIVITAMIN                       /07504101/ [Concomitant]
     Active Substance: VITAMINS
     Dosage: 1 DF, QD
     Route: 048
  12. JAKAFI [Suspect]
     Active Substance: RUXOLITINIB
     Dosage: 5 MG, BID
     Route: 048
     Dates: start: 20140810
  13. ARICEPT [Concomitant]
     Active Substance: DONEPEZIL HYDROCHLORIDE
     Dosage: 10 MG, QD
     Route: 048
  14. ALLOPURINOL. [Concomitant]
     Active Substance: ALLOPURINOL
     Dosage: 200 MG, QD
     Route: 048

REACTIONS (34)
  - Confusional state [Unknown]
  - Blood thyroid stimulating hormone increased [Unknown]
  - Rales [Unknown]
  - Myelofibrosis [Fatal]
  - White blood cell count increased [Unknown]
  - Metabolic acidosis [Unknown]
  - Anxiety [Unknown]
  - Eye disorder [Unknown]
  - Chronic kidney disease [Unknown]
  - Hyperkalaemia [Recovering/Resolving]
  - Hepatomegaly [Unknown]
  - Systemic inflammatory response syndrome [Unknown]
  - Acute leukaemia [Unknown]
  - Left ventricular hypertrophy [Unknown]
  - Sinus bradycardia [Unknown]
  - Thrombocytopenia [Unknown]
  - Gait disturbance [Unknown]
  - Motion sickness [Unknown]
  - Dermatitis bullous [Unknown]
  - Acute kidney injury [Unknown]
  - Leukocytosis [Unknown]
  - Pain [Unknown]
  - Asthenia [Unknown]
  - Ecchymosis [Unknown]
  - Tremor [Unknown]
  - Ear congestion [Unknown]
  - Contusion [Unknown]
  - Acidosis hyperchloraemic [Unknown]
  - Malnutrition [Unknown]
  - Anaemia [Unknown]
  - Splenomegaly [Unknown]
  - Lethargy [Unknown]
  - Cachexia [Unknown]
  - Oedema [Unknown]

NARRATIVE: CASE EVENT DATE: 20141215
